FAERS Safety Report 21676946 (Version 2)
Quarter: 2023Q1

REPORT INFORMATION
  Report Type: Spontaneous
  Country: NL (occurrence: NL)
  Receive Date: 20221203
  Receipt Date: 20230314
  Transmission Date: 20230418
  Serious: Yes (Other)
  Sender: FDA-Public Use
  Company Number: NL-LRB-00849631

PATIENT
  Sex: Male
  Weight: 61.5 kg

DRUGS (3)
  1. AMOXICILLIN [Suspect]
     Active Substance: AMOXICILLIN
     Indication: Endocarditis
     Dosage: 12000 MILLIGRAM, ONCE A DAY
     Route: 065
     Dates: start: 20221104, end: 20221104
  2. AMOXICILLIN [Suspect]
     Active Substance: AMOXICILLIN
     Indication: Arthritis bacterial
  3. AMOXICILLIN [Suspect]
     Active Substance: AMOXICILLIN
     Indication: Intervertebral discitis

REACTIONS (2)
  - Tubulointerstitial nephritis [Recovered/Resolved]
  - Acute kidney injury [Recovered/Resolved]
